FAERS Safety Report 10679554 (Version 1)
Quarter: 2014Q4

REPORT INFORMATION
  Report Type: Other
  Country: IT (occurrence: IT)
  Receive Date: 20141229
  Receipt Date: 20141229
  Transmission Date: 20150529
  Serious: Yes (Other)
  Sender: FDA-Public Use
  Company Number: IT-TAKEDA-2014JNJ006571

PATIENT

DRUGS (2)
  1. VELCADE [Suspect]
     Active Substance: BORTEZOMIB
     Indication: PLASMA CELL MYELOMA
     Dosage: 1300 MG/M2, UNK
     Route: 058
     Dates: start: 20140926, end: 20141113
  2. SOLDESAM [Concomitant]
     Active Substance: DEXAMETHASONE
     Indication: PLASMA CELL MYELOMA
     Dosage: 4 MG/ML, UNK
     Route: 042
     Dates: start: 20140926

REACTIONS (2)
  - Lung disorder [Unknown]
  - Respiratory distress [Unknown]

NARRATIVE: CASE EVENT DATE: 20141127
